FAERS Safety Report 10618413 (Version 1)
Quarter: 2014Q4

REPORT INFORMATION
  Report Type: Spontaneous
  Country: US (occurrence: US)
  Receive Date: 20141202
  Receipt Date: 20141202
  Transmission Date: 20150529
  Serious: No
  Sender: FDA-Public Use
  Company Number: US-TEVA-514239USA

PATIENT
  Age: 66 Year
  Sex: Female

DRUGS (7)
  1. ZYMAXID [Suspect]
     Active Substance: GATIFLOXACIN
     Indication: PROPHYLAXIS
     Dosage: 1 OPHTHALMIC DROP ONCE TO RIGHT EYE
     Route: 047
     Dates: start: 20140907
  2. TOPROL XL [Concomitant]
     Active Substance: METOPROLOL SUCCINATE
     Indication: BLOOD PRESSURE ABNORMAL
  3. PREVACID [Concomitant]
     Active Substance: LANSOPRAZOLE
  4. LUMIGAN [Concomitant]
     Active Substance: BIMATOPROST
     Indication: GLAUCOMA
  5. BENZONATATE. [Concomitant]
     Active Substance: BENZONATATE
  6. CLARITIN-D 12 HOUR [Concomitant]
     Active Substance: LORATADINE\PSEUDOEPHEDRINE SULFATE
  7. AZITHROMYCIN [Suspect]
     Active Substance: AZITHROMYCIN ANHYDROUS
     Indication: GINGIVITIS
     Route: 065

REACTIONS (5)
  - Dry throat [Unknown]
  - Pruritus [Not Recovered/Not Resolved]
  - Drug hypersensitivity [Unknown]
  - Dyspnoea [Unknown]
  - Chest discomfort [Unknown]
